FAERS Safety Report 10905436 (Version 5)
Quarter: 2020Q2

REPORT INFORMATION
  Report Type: Spontaneous
  Country: BR (occurrence: BR)
  Receive Date: 20150311
  Receipt Date: 20200513
  Transmission Date: 20200713
  Serious: Yes (Hospitalization, Other)
  Sender: FDA-Public Use
  Company Number: BR-BIOMARINAP-BR-2015-105740

PATIENT
  Age: 17 Year
  Sex: Male
  Weight: 29 kg

DRUGS (3)
  1. NORMAL SALINE [Concomitant]
     Active Substance: SODIUM CHLORIDE
     Indication: NASAL DISORDER
  2. AVAMYS [Concomitant]
     Active Substance: FLUTICASONE FUROATE
     Indication: RHINITIS ALLERGIC
     Dosage: UNK, QD
  3. NAGLAZYME [Suspect]
     Active Substance: GALSULFASE
     Indication: MUCOPOLYSACCHARIDOSIS VI
     Dosage: UNK, QW
     Route: 042
     Dates: start: 200908

REACTIONS (6)
  - Klebsiella infection [Recovering/Resolving]
  - Pleural effusion [Recovering/Resolving]
  - Gait inability [Unknown]
  - Post procedural complication [Unknown]
  - Spinal cord compression [Recovered/Resolved with Sequelae]
  - Increased bronchial secretion [Unknown]
